FAERS Safety Report 25735469 (Version 3)
Quarter: 2025Q4

REPORT INFORMATION
  Report Type: Spontaneous
  Country: JP (occurrence: JP)
  Receive Date: 20250828
  Receipt Date: 20251120
  Transmission Date: 20260118
  Serious: Yes (Hospitalization, Other)
  Sender: BRISTOL-MYERS SQUIBB COMPANY
  Company Number: JP-ONO-2025JP014762

PATIENT
  Age: 71 Year
  Sex: Female

DRUGS (1)
  1. OPDIVO [Suspect]
     Active Substance: NIVOLUMAB
     Indication: Oesophageal carcinoma
     Route: 041

REACTIONS (8)
  - Dehydration [Unknown]
  - Hyponatraemia [Unknown]
  - Immune-mediated myasthenia gravis [Unknown]
  - Polyneuropathy [Unknown]
  - Movement disorder [Unknown]
  - Eyelid ptosis [Unknown]
  - Hypophagia [Unknown]
  - Dysphagia [Unknown]
